FAERS Safety Report 6604709-0 (Version None)
Quarter: 2010Q1

REPORT INFORMATION
  Report Type: 
  Country: None (occurrence: None)
  Receive Date: 20100226
  Receipt Date: 20100219
  Transmission Date: 20100710
  Serious: No
  Sender: FDA-Public Use
  Company Number: US-B.I. PHARMACEUTICALS,INC./RIDGEFIELD-2010-BP-02112BP

PATIENT
  Sex: Female

DRUGS (7)
  1. SPIRIVA [Suspect]
     Indication: CHRONIC OBSTRUCTIVE PULMONARY DISEASE
     Dosage: 18 MCG
     Route: 055
     Dates: start: 20091115
  2. GINGKO BILOBA [Suspect]
     Indication: CHRONIC OBSTRUCTIVE PULMONARY DISEASE
     Dates: start: 20091201
  3. VERAPAMIL [Concomitant]
     Indication: HYPERTENSION
  4. CALCIUM [Concomitant]
     Indication: OSTEOPENIA
  5. CALCIUM [Concomitant]
     Indication: OSTEOPOROSIS
  6. VIT D [Concomitant]
     Indication: OSTEOPENIA
  7. VIT D [Concomitant]
     Indication: OSTEOPOROSIS

REACTIONS (2)
  - DRUG INEFFECTIVE [None]
  - PNEUMONIA [None]
